FAERS Safety Report 5831113-5 (Version None)
Quarter: 2008Q3

REPORT INFORMATION
  Report Type: 
  Country: None (occurrence: None)
  Receive Date: 20080801
  Receipt Date: 20080410
  Transmission Date: 20090109
  Serious: No
  Sender: FDA-Public Use
  Company Number: US-BRISTOL-MYERS SQUIBB COMPANY-14146674

PATIENT
  Age: 74 Year
  Sex: Female

DRUGS (6)
  1. COUMADIN [Suspect]
     Dates: start: 20070101
  2. LASIX [Concomitant]
     Dates: end: 20080401
  3. ATENOLOL [Concomitant]
  4. VALIUM [Concomitant]
  5. CALTRATE [Concomitant]
  6. FISH OIL [Concomitant]

REACTIONS (2)
  - FATIGUE [None]
  - INTERNATIONAL NORMALISED RATIO INCREASED [None]
